FAERS Safety Report 17570573 (Version 1)
Quarter: 2020Q1

REPORT INFORMATION
  Report Type: Spontaneous
  Country: US (occurrence: US)
  Receive Date: 20200323
  Receipt Date: 20200323
  Transmission Date: 20200409
  Serious: No
  Sender: FDA-Public Use
  Company Number: US-BAYER-2020-048724

PATIENT
  Sex: Female

DRUGS (2)
  1. PROSTAT [CHLORMADINONE ACETATE] [Suspect]
     Active Substance: CHLORMADINONE ACETATE
  2. MIRALAX [Suspect]
     Active Substance: POLYETHYLENE GLYCOL 3350
     Indication: GASTROINTESTINAL DISORDER
     Dosage: UNK
     Route: 048
     Dates: start: 20200310, end: 20200319

REACTIONS (2)
  - Incorrect product administration duration [None]
  - Constipation [None]
